FAERS Safety Report 19424727 (Version 2)
Quarter: 2021Q3

REPORT INFORMATION
  Report Type: Spontaneous
  Country: US (occurrence: US)
  Receive Date: 20210616
  Receipt Date: 20210803
  Transmission Date: 20211014
  Serious: No
  Sender: FDA-Public Use
  Company Number: US-SK LIFE SCIENCE, INC-SKPVG-2021-000050

PATIENT

DRUGS (4)
  1. ATIVAN [Suspect]
     Active Substance: LORAZEPAM
     Indication: PRODUCT USED FOR UNKNOWN INDICATION
     Dosage: UNK
     Route: 065
  2. XCOPRI [Suspect]
     Active Substance: CENOBAMATE
     Indication: SEIZURE
     Dosage: 25 MILLIGRAM, ONCE DAILY AT NIGHT
     Route: 048
     Dates: start: 20201226
  3. LAMICTAL [Suspect]
     Active Substance: LAMOTRIGINE
     Dosage: 50 MILLIGRAM
     Route: 065
  4. LAMICTAL [Suspect]
     Active Substance: LAMOTRIGINE
     Indication: GENERALISED TONIC-CLONIC SEIZURE
     Dosage: UNK
     Route: 065

REACTIONS (5)
  - Speech disorder [Not Recovered/Not Resolved]
  - Generalised tonic-clonic seizure [Recovered/Resolved]
  - Headache [Not Recovered/Not Resolved]
  - Partial seizures [Recovering/Resolving]
  - Dizziness [Not Recovered/Not Resolved]

NARRATIVE: CASE EVENT DATE: 20201227
